FAERS Safety Report 10003946 (Version 1)
Quarter: 2014Q1

REPORT INFORMATION
  Report Type: Spontaneous
  Country: IT (occurrence: IT)
  Receive Date: 20140312
  Receipt Date: 20140312
  Transmission Date: 20141002
  Serious: Yes (Hospitalization)
  Sender: FDA-Public Use
  Company Number: IT-TEVA-466016ISR

PATIENT
  Age: 19 Year
  Sex: Female
  Weight: 58 kg

DRUGS (2)
  1. METOTRESSATO TEVA [Suspect]
     Indication: LYMPHOMA
     Dosage: 716 MILLIGRAM DAILY;
     Route: 042
     Dates: start: 20131209, end: 20131209
  2. VINCRISTINA TEVA ITALIA [Concomitant]
     Indication: NON-HODGKIN^S LYMPHOMA
     Dosage: 2 MILLIGRAM DAILY;
     Route: 042
     Dates: start: 20131209, end: 20131209

REACTIONS (1)
  - Mucosal inflammation [Recovered/Resolved]
